FAERS Safety Report 11168423 (Version 1)
Quarter: 2015Q2

REPORT INFORMATION
  Report Type: Spontaneous
  Country: US (occurrence: US)
  Receive Date: 20150605
  Receipt Date: 20150605
  Transmission Date: 20150821
  Serious: No
  Sender: FDA-Public Use
  Company Number: US-GLAXOSMITHKLINE-US2015075677

PATIENT
  Age: 55 Year
  Sex: Male

DRUGS (1)
  1. FLONASE [Suspect]
     Active Substance: FLUTICASONE PROPIONATE
     Indication: RHINITIS ALLERGIC
     Dosage: UNK, U
     Route: 065
     Dates: start: 201505, end: 201505

REACTIONS (3)
  - Peripheral swelling [Recovering/Resolving]
  - Mouth ulceration [Not Recovered/Not Resolved]
  - Nasal oedema [Recovering/Resolving]

NARRATIVE: CASE EVENT DATE: 201505
